FAERS Safety Report 24745370 (Version 2)
Quarter: 2025Q1

REPORT INFORMATION
  Report Type: Report from Study
  Country: US (occurrence: US)
  Receive Date: 20241217
  Receipt Date: 20250121
  Transmission Date: 20250409
  Serious: Yes (Other)
  Sender: MERCK
  Company Number: US-009507513-2412USA003934

PATIENT
  Sex: Male
  Weight: 65.76 kg

DRUGS (25)
  1. SOTATERCEPT [Suspect]
     Active Substance: SOTATERCEPT
     Indication: Pulmonary arterial hypertension
     Dosage: 0.9 MILLILITER, Q3W, STRENGTH: 45 MG
     Route: 058
     Dates: start: 20241023
  2. KEYTRUDA [Suspect]
     Active Substance: PEMBROLIZUMAB
  3. COENZYME Q10 [Concomitant]
     Active Substance: DIETARY SUPPLEMENT\UBIDECARENONE
  4. TYLENOL EXTRA STRENGTH [Concomitant]
     Active Substance: ACETAMINOPHEN
  5. COVID-19 VACCINE [Concomitant]
  6. ROPINIROLE HYDROCHLORIDE [Concomitant]
     Active Substance: ROPINIROLE HYDROCHLORIDE
  7. TADALAFIL [Concomitant]
     Active Substance: TADALAFIL
  8. ALBUTEROL SULFATE [Concomitant]
     Active Substance: ALBUTEROL SULFATE
  9. DOXYCYCLINE HYCLATE [Concomitant]
     Active Substance: DOXYCYCLINE HYCLATE
  10. TRAMADOL HCL [Concomitant]
     Active Substance: TRAMADOL HYDROCHLORIDE
  11. PROAIR HFA [Concomitant]
     Active Substance: ALBUTEROL SULFATE
  12. BUMETANIDE [Concomitant]
     Active Substance: BUMETANIDE
  13. MINERALS\VITAMINS [Concomitant]
     Active Substance: MINERALS\VITAMINS
  14. OXYGEN [Concomitant]
     Active Substance: OXYGEN
  15. ZOLPIDEM TARTRATE [Concomitant]
     Active Substance: ZOLPIDEM TARTRATE
  16. PROMETHAZINE HYDROCHLORIDE [Concomitant]
     Active Substance: PROMETHAZINE HYDROCHLORIDE
  17. MONTELUKAST SODIUM [Concomitant]
     Active Substance: MONTELUKAST SODIUM
  18. REMODULIN [Concomitant]
     Active Substance: TREPROSTINIL
  19. LETAIRIS [Concomitant]
     Active Substance: AMBRISENTAN
  20. ATROPINE\DIPHENOXYLATE [Concomitant]
     Active Substance: ATROPINE\DIPHENOXYLATE
  21. ZOFRAN [Concomitant]
     Active Substance: ONDANSETRON HYDROCHLORIDE
  22. PRAVASTATIN SODIUM [Concomitant]
     Active Substance: PRAVASTATIN SODIUM
  23. AMBRISENTAN [Concomitant]
     Active Substance: AMBRISENTAN
  24. LOPERAMIDE [Concomitant]
     Active Substance: LOPERAMIDE
  25. POTASSIUM CHLORIDE [Concomitant]
     Active Substance: POTASSIUM CHLORIDE

REACTIONS (7)
  - Bladder cancer recurrent [Unknown]
  - Dyspnoea exertional [Unknown]
  - Pain [Unknown]
  - Oedema peripheral [Unknown]
  - Flushing [Unknown]
  - Headache [Unknown]
  - Adverse event [Unknown]

NARRATIVE: CASE EVENT DATE: 20240101
